FAERS Safety Report 9823396 (Version 3)
Quarter: 2014Q1

REPORT INFORMATION
  Report Type: Report from Study
  Country: NZ (occurrence: NZ)
  Receive Date: 20140116
  Receipt Date: 20140212
  Transmission Date: 20141002
  Serious: Yes (Hospitalization, Other)
  Sender: FDA-Public Use
  Company Number: PHHY2014NZ004920

PATIENT
  Age: 67 Year
  Sex: Male

DRUGS (7)
  1. CLOZARIL [Suspect]
     Indication: PSYCHOTIC DISORDER
     Dosage: 25 MG, UNK
     Route: 048
     Dates: start: 20131106, end: 20131124
  2. MOVICOL [Concomitant]
     Indication: CONSTIPATION
     Dosage: UNK (2 TABLETS DAILY)
     Route: 048
  3. LAXSOL [Concomitant]
     Indication: CONSTIPATION
     Dosage: 2 DF, DAILY (BID)
     Route: 048
  4. PARACETAMOL [Concomitant]
     Indication: PAIN
     Dosage: 2 G, QID
     Route: 048
  5. TAMSULOSIN [Concomitant]
     Indication: INCONTINENCE
     Dosage: 0.4 MG, UNK
  6. VESICARE [Concomitant]
     Indication: INCONTINENCE
     Dosage: UNK UKN,(DAILY)
  7. VENLAFAXINE [Concomitant]
     Indication: DEPRESSION
     Dosage: 15 MG, DAILY

REACTIONS (5)
  - Gastrointestinal haemorrhage [Recovered/Resolved]
  - Haematemesis [Recovered/Resolved]
  - Abdominal pain upper [Recovered/Resolved]
  - Intestinal obstruction [Recovered/Resolved]
  - Constipation [Unknown]
